FAERS Safety Report 22651627 (Version 1)
Quarter: 2023Q2

REPORT INFORMATION
  Report Type: Spontaneous
  Country: US (occurrence: US)
  Receive Date: 20230628
  Receipt Date: 20230628
  Transmission Date: 20230722
  Serious: No
  Sender: FDA-Public Use
  Company Number: US-CTI BIOPHARMA-2023US03480

PATIENT

DRUGS (3)
  1. VONJO [Suspect]
     Active Substance: PACRITINIB
     Indication: Myelofibrosis
     Dosage: 200 MG, BID
     Route: 048
  2. BUMEX [Concomitant]
     Active Substance: BUMETANIDE
     Indication: Oedema
     Dosage: 2 MG, QD
  3. DIGOXIN [Concomitant]
     Active Substance: DIGOXIN
     Indication: Atrial fibrillation

REACTIONS (7)
  - Gastric dilatation [Unknown]
  - Weight increased [Unknown]
  - Splenomegaly [Unknown]
  - Obstruction [Unknown]
  - Diarrhoea [Unknown]
  - Oedema peripheral [Unknown]
  - Haemoglobin decreased [Unknown]

NARRATIVE: CASE EVENT DATE: 20230201
